FAERS Safety Report 25774889 (Version 1)
Quarter: 2025Q3

REPORT INFORMATION
  Report Type: Spontaneous
  Country: US (occurrence: None)
  Receive Date: 20250905
  Receipt Date: 20250905
  Transmission Date: 20251020
  Serious: No
  Sender: FDA-CTU
  Company Number: None

PATIENT
  Age: 16 Year
  Sex: Male
  Weight: 61.23 kg

DRUGS (1)
  1. .DELTA.8-TETRAHYDROCANNABINOL [Suspect]
     Active Substance: .DELTA.8-TETRAHYDROCANNABINOL

REACTIONS (10)
  - Cough [None]
  - Disorientation [None]
  - Somnolence [None]
  - Confusional state [None]
  - Seizure [None]
  - Ocular hyperaemia [None]
  - Thinking abnormal [None]
  - Panic attack [None]
  - Disorganised speech [None]
  - Lack of spontaneous speech [None]

NARRATIVE: CASE EVENT DATE: 20250523
